FAERS Safety Report 24555388 (Version 4)
Quarter: 2025Q1

REPORT INFORMATION
  Report Type: Spontaneous
  Country: SE (occurrence: SE)
  Receive Date: 20241028
  Receipt Date: 20250113
  Transmission Date: 20250409
  Serious: Yes (Other)
  Sender: PFIZER
  Company Number: SE-PFIZER INC-202400284959

PATIENT
  Age: 80 Year
  Sex: Female

DRUGS (1)
  1. ESTRADIOL [Suspect]
     Active Substance: ESTRADIOL

REACTIONS (4)
  - Vulvovaginal injury [Unknown]
  - Vaginal haemorrhage [Unknown]
  - Patient-device incompatibility [Unknown]
  - Device user interface issue [Unknown]
